FAERS Safety Report 13941879 (Version 1)
Quarter: 2017Q3

REPORT INFORMATION
  Report Type: Spontaneous
  Country: US (occurrence: None)
  Receive Date: 20170905
  Receipt Date: 20170905
  Transmission Date: 20171127
  Serious: Yes (Death)
  Sender: FDA-Public Use
  Company Number: None

PATIENT
  Age: 67 Year
  Sex: Male
  Weight: 108.1 kg

DRUGS (2)
  1. RITUXIMAB. [Suspect]
     Active Substance: RITUXIMAB
     Dates: end: 20160415
  2. BENDAMUSTINE HYDROCHLORIDE. [Suspect]
     Active Substance: BENDAMUSTINE HYDROCHLORIDE
     Dates: end: 20160414

REACTIONS (5)
  - Pulmonary mass [None]
  - Cheyne-Stokes respiration [None]
  - Cerebrovascular accident [None]
  - Hepatic lesion [None]
  - Fall [None]

NARRATIVE: CASE EVENT DATE: 20170827
